FAERS Safety Report 20099126 (Version 1)
Quarter: 2021Q4

REPORT INFORMATION
  Report Type: Spontaneous
  Country: US (occurrence: None)
  Receive Date: 20211122
  Receipt Date: 20211122
  Transmission Date: 20220304
  Serious: Yes (Death, Life-Threatening, Other)
  Sender: FDA-Public Use
  Company Number: None

PATIENT
  Age: 79 Year
  Sex: Male
  Weight: 85.8 kg

DRUGS (1)
  1. TOCILIZUMAB [Suspect]
     Active Substance: TOCILIZUMAB
     Indication: COVID-19
     Dosage: OTHER FREQUENCY : ONCE;?OTHER ROUTE : IVPB PREPARED FROM SQ PREFILLED SYRINGES;?
     Route: 050
     Dates: start: 20211113, end: 20211113

REACTIONS (3)
  - Sputum culture positive [None]
  - Staphylococcal infection [None]
  - General physical health deterioration [None]

NARRATIVE: CASE EVENT DATE: 20211120
